FAERS Safety Report 18095096 (Version 1)
Quarter: 2020Q3

REPORT INFORMATION
  Report Type: Spontaneous
  Country: US (occurrence: US)
  Receive Date: 20200731
  Receipt Date: 20200731
  Transmission Date: 20201103
  Serious: Yes (Life-Threatening, Other)
  Sender: FDA-Public Use
  Company Number: US-HIKMA PHARMACEUTICALS USA INC.-US-H14001-20-03466

PATIENT
  Age: 52 Year
  Sex: Female

DRUGS (3)
  1. CLONIDINE. [Concomitant]
     Active Substance: CLONIDINE
     Indication: HOT FLUSH
     Route: 065
  2. METOPROLOL. [Suspect]
     Active Substance: METOPROLOL
     Indication: HYPERTENSION
     Route: 042
  3. ST JOHN^S WORT [Concomitant]
     Active Substance: ST. JOHN^S WORT
     Indication: GENERALISED ANXIETY DISORDER
     Dosage: UNKNOWN
     Route: 065

REACTIONS (5)
  - Arteriospasm coronary [Recovered/Resolved]
  - Hypertension [Recovered/Resolved]
  - Respiratory distress [Recovered/Resolved]
  - Sinus tachycardia [Recovered/Resolved]
  - Ejection fraction decreased [Recovered/Resolved]
